FAERS Safety Report 6606500-8 (Version None)
Quarter: 2010Q1

REPORT INFORMATION
  Report Type: 
  Country: None (occurrence: None)
  Receive Date: 20100226
  Receipt Date: 20100219
  Transmission Date: 20100710
  Serious: Yes (Other)
  Sender: FDA-Public Use
  Company Number: PHHO2010BE02798

PATIENT
  Sex: Female

DRUGS (4)
  1. ZOLEDRONIC ACID [Suspect]
     Indication: BREAST CANCER
     Dosage: 4MG 2 X PER YEAR
     Route: 042
     Dates: start: 20050701
  2. CGS 20267 T30748+TAB [Suspect]
     Indication: BREAST CANCER
     Dosage: 2.5 MG, QD
     Route: 048
     Dates: start: 20050630
  3. CALCIUM [Concomitant]
  4. VITAMIN D [Concomitant]

REACTIONS (9)
  - ERYTHEMA [None]
  - GINGIVAL INFECTION [None]
  - HYPOPHAGIA [None]
  - PAIN [None]
  - PAIN IN JAW [None]
  - SOFT TISSUE INFECTION [None]
  - SWELLING [None]
  - TOOTH ABSCESS [None]
  - TOOTH EXTRACTION [None]
